FAERS Safety Report 24710887 (Version 1)
Quarter: 2024Q4

REPORT INFORMATION
  Report Type: Spontaneous
  Country: FR (occurrence: FR)
  Receive Date: 20241209
  Receipt Date: 20241209
  Transmission Date: 20250115
  Serious: Yes (Hospitalization)
  Sender: CHEPLAPHARM
  Company Number: None

PATIENT
  Age: 43 Year
  Sex: Male
  Weight: 92 kg

DRUGS (14)
  1. OLANZAPINE [Suspect]
     Active Substance: OLANZAPINE
     Indication: Product used for unknown indication
     Dosage: 10MG 2 AT BEDTIME?DAILY DOSE: 20 MILLIGRAM
     Route: 048
  2. KARDEGIC [Suspect]
     Active Substance: ASPIRIN DL-LYSINE
     Indication: Coarctation of the aorta
     Dosage: 75MG 0-1-0?DAILY DOSE: 75 MILLIGRAM
     Route: 048
  3. AMLODIPINE [Suspect]
     Active Substance: AMLODIPINE BESYLATE
     Indication: Hypertension
     Dosage: 5MG 0-0-1 _ STOP ON 05/11/2024 IN THE MORNING?DAILY DOSE: 5 MILLIGRAM
     Route: 048
     Dates: end: 20241105
  4. SPIRONOLACTONE [Suspect]
     Active Substance: SPIRONOLACTONE
     Indication: Hypertension
     Dosage: DAILY DOSE: 50 MILLIGRAM
     Route: 048
  5. ATORVASTATIN [Suspect]
     Active Substance: ATORVASTATIN
     Indication: Prophylaxis
     Dosage: 20MG 0-0-1?DAILY DOSE: 20 MILLIGRAM
     Route: 048
  6. CLOMIPRAMINE HYDROCHLORIDE [Suspect]
     Active Substance: CLOMIPRAMINE HYDROCHLORIDE
     Indication: Depression
     Dosage: 75MG 1-0-1?DAILY DOSE: 150 MILLIGRAM
     Route: 048
  7. FLUOXETINE HYDROCHLORIDE [Suspect]
     Active Substance: FLUOXETINE HYDROCHLORIDE
     Indication: Depression
     Dosage: 20MG 3-0-0?DAILY DOSE: 60 MILLIGRAM
     Route: 048
  8. ALPRAZOLAM [Suspect]
     Active Substance: ALPRAZOLAM
     Indication: Anxiety
     Dosage: 0.50MG 1-0.5-1?DAILY DOSE: 1.25 MILLIGRAM
     Route: 048
  9. BISOPROLOL FUMARATE [Suspect]
     Active Substance: BISOPROLOL FUMARATE
     Indication: Hypertension
     Dosage: 7.5MG 1-0-0?DAILY DOSE: 7.5 MILLIGRAM
     Route: 048
  10. PERICIAZINE [Suspect]
     Active Substance: PERICIAZINE
     Indication: Product used for unknown indication
     Dosage: 10MG 2 AT BEDTIME?DAILY DOSE: 20 MILLIGRAM
     Route: 048
  11. CORN OIL, OXIDIZED [Suspect]
     Active Substance: CORN OIL, OXIDIZED
     Dosage: 1 SPRAY MORNING-NOON-SNACK-EVENING-BEDTIME
  12. AKINETON [Suspect]
     Active Substance: BIPERIDEN HYDROCHLORIDE
     Dosage: 1-0-0?DAILY DOSE: 4 MILLIGRAM
  13. ZOPICLONE [Suspect]
     Active Substance: ZOPICLONE
     Dosage: 7.5MG 1 AT BEDTIME?DAILY DOSE: 7.5 MILLIGRAM
  14. PANTOPRAZOLE [Suspect]
     Active Substance: PANTOPRAZOLE
     Dosage: 40MG 0-0--1 IF NECESSARY

REACTIONS (7)
  - Malaise [Recovering/Resolving]
  - Fall [Recovering/Resolving]
  - Extrapyramidal disorder [Recovering/Resolving]
  - Orthostatic hypotension [Recovering/Resolving]
  - Hyperleukocytosis [Unknown]
  - Renal failure [Unknown]
  - Autonomic nervous system imbalance [Unknown]

NARRATIVE: CASE EVENT DATE: 20241101
